FAERS Safety Report 16502529 (Version 1)
Quarter: 2019Q3

REPORT INFORMATION
  Report Type: Spontaneous
  Country: US (occurrence: US)
  Receive Date: 20190630
  Receipt Date: 20190630
  Transmission Date: 20191004
  Serious: Yes (Life-Threatening, Hospitalization)
  Sender: FDA-Public Use
  Company Number: None

PATIENT
  Age: 62 Year
  Sex: Female
  Weight: 112.5 kg

DRUGS (7)
  1. VITAMIN D [Concomitant]
     Active Substance: VITAMIN D NOS
  2. TOUJEO MAX [Suspect]
     Active Substance: INSULIN GLARGINE
     Indication: TYPE 2 DIABETES MELLITUS
     Route: 058
     Dates: end: 20190624
  3. HUMALOG [Concomitant]
     Active Substance: INSULIN LISPRO
  4. SYNTHROID [Concomitant]
     Active Substance: LEVOTHYROXINE SODIUM
  5. EFEXOR [Concomitant]
     Active Substance: VENLAFAXINE HYDROCHLORIDE
  6. BENICAR [Concomitant]
     Active Substance: OLMESARTAN MEDOXOMIL
  7. PIROXICAM. [Concomitant]
     Active Substance: PIROXICAM

REACTIONS (6)
  - Depression [None]
  - Fatigue [None]
  - Weight increased [None]
  - Morbid thoughts [None]
  - Product dose omission [None]
  - Blood glucose increased [None]
